FAERS Safety Report 18612802 (Version 1)
Quarter: 2020Q4

REPORT INFORMATION
  Report Type: Spontaneous
  Country: US (occurrence: US)
  Receive Date: 20201214
  Receipt Date: 20201214
  Transmission Date: 20210114
  Serious: No
  Sender: FDA-Public Use
  Company Number: US-GILEAD-2020-0508720

PATIENT
  Age: 71 Year
  Sex: Female

DRUGS (5)
  1. VEKLURY [Suspect]
     Active Substance: REMDESIVIR
     Indication: PRODUCT USED FOR UNKNOWN INDICATION
     Dosage: UNK
     Route: 065
  2. VEKLURY [Suspect]
     Active Substance: REMDESIVIR
     Dosage: 200 MG
     Route: 065
     Dates: start: 20201207
  3. WARFARIN [Suspect]
     Active Substance: WARFARIN
     Dosage: 4 MG
     Route: 065
     Dates: start: 20201203, end: 20201203
  4. WARFARIN [Suspect]
     Active Substance: WARFARIN
     Indication: PRODUCT USED FOR UNKNOWN INDICATION
     Dosage: 2 MG
     Route: 065
     Dates: start: 20201202, end: 20201202
  5. WARFARIN [Suspect]
     Active Substance: WARFARIN
     Dosage: 4 MG
     Route: 065
     Dates: start: 20201204, end: 20201204

REACTIONS (2)
  - Drug interaction [Unknown]
  - International normalised ratio increased [Not Recovered/Not Resolved]
